FAERS Safety Report 6752401-4 (Version None)
Quarter: 2010Q2

REPORT INFORMATION
  Report Type: 
  Country: None (occurrence: None)
  Receive Date: 20100601
  Receipt Date: 20100601
  Transmission Date: 20101027
  Serious: Yes (Death, Other)
  Sender: FDA-Public Use
  Company Number: None

PATIENT
  Age: 94 Year
  Sex: Female
  Weight: 58.9676 kg

DRUGS (19)
  1. FENTANYL [Suspect]
     Indication: PAIN
     Dosage: 50 MG EVERY 48 - 72 HOUR TRANSDERMAL
     Route: 062
     Dates: start: 20100201, end: 20100528
  2. ROXANOL [Suspect]
     Indication: GRIMACING
     Dosage: EVERY 2 - 4 HOURS PO
     Route: 048
     Dates: start: 20100428, end: 20100528
  3. VICODIN ES [Concomitant]
  4. POTASSIUM CHLORIDE [Concomitant]
  5. MUCINEX [Concomitant]
  6. MAG-OX [Concomitant]
  7. ALBUTEROL [Concomitant]
  8. ARICEPT ASPIRIN [Concomitant]
  9. CALCIUM ACETATE [Concomitant]
  10. COUMADIN [Concomitant]
  11. LASIX [Concomitant]
  12. LEVALBUTEROL HCL [Concomitant]
  13. LEVOTHYROXINE SODIUM [Concomitant]
  14. METOPROLOL TARTRATE [Concomitant]
  15. OMEPRAZOLE [Concomitant]
  16. POTASSIUM CHLORIDE [Concomitant]
  17. SIMVASTATIN [Concomitant]
  18. SPIRIVA [Concomitant]
  19. ARICEPT [Concomitant]

REACTIONS (4)
  - ATRIAL FIBRILLATION [None]
  - INAPPROPRIATE SCHEDULE OF DRUG ADMINISTRATION [None]
  - INCORRECT DOSE ADMINISTERED [None]
  - TOOTH EXTRACTION [None]
